FAERS Safety Report 4915874-5 (Version None)
Quarter: 2006Q1

REPORT INFORMATION
  Report Type: 
  Country: None (occurrence: None)
  Receive Date: 20060214
  Receipt Date: 20060203
  Transmission Date: 20060701
  Serious: Yes (Hospitalization)
  Sender: FDA-Public Use
  Company Number: 2006019263

PATIENT
  Age: 20 Year
  Sex: Female
  Weight: 61.5 kg

DRUGS (2)
  1. ZOLOFT [Suspect]
     Indication: ANXIETY
     Dosage: (1 IN 1 D), ORAL
     Route: 048
     Dates: start: 20030101
  2. ALLEGRA [Suspect]
     Indication: MULTIPLE ALLERGIES

REACTIONS (3)
  - ASTHMA [None]
  - HEADACHE [None]
  - ROAD TRAFFIC ACCIDENT [None]
